FAERS Safety Report 6077625-3 (Version None)
Quarter: 2009Q1

REPORT INFORMATION
  Report Type: 
  Country: None (occurrence: None)
  Receive Date: 20090126
  Receipt Date: 20080326
  Transmission Date: 20090719
  Serious: Yes (Other)
  Sender: FDA-Public Use
  Company Number: WAES 0803USA04512

PATIENT
  Sex: Female

DRUGS (1)
  1. PRIMAXIN [Suspect]
     Dosage: IV
     Route: 042

REACTIONS (1)
  - CONVULSION [None]
